FAERS Safety Report 4432045-X (Version None)
Quarter: 2004Q3

REPORT INFORMATION
  Report Type: 
  Country: None (occurrence: None)
  Receive Date: 20040825
  Receipt Date: 20040713
  Transmission Date: 20050211
  Serious: Yes (Death)
  Sender: FDA-Public Use
  Company Number: JP-BRISTOL-MYERS SQUIBB COMPANY-12639811

PATIENT
  Age: 57 Year
  Sex: Male

DRUGS (5)
  1. TAXOL [Suspect]
     Indication: GASTRIC CANCER
     Route: 042
     Dates: start: 20040712, end: 20040712
  2. DECADRON [Concomitant]
     Route: 042
     Dates: start: 20040712, end: 20040712
  3. CHLOR-TRIMETON [Concomitant]
     Route: 042
     Dates: start: 20040712, end: 20040712
  4. GASTER [Concomitant]
     Route: 042
     Dates: start: 20040712, end: 20040712
  5. SEROTONE [Concomitant]
     Route: 042
     Dates: start: 20040712, end: 20040712

REACTIONS (8)
  - BLOOD PRESSURE DECREASED [None]
  - BODY TEMPERATURE DECREASED [None]
  - CARDIO-RESPIRATORY ARREST [None]
  - CHEST DISCOMFORT [None]
  - COLD SWEAT [None]
  - DEATH [None]
  - LOSS OF CONSCIOUSNESS [None]
  - PALLOR [None]
